FAERS Safety Report 9492776 (Version 2)
Quarter: 2013Q3

REPORT INFORMATION
  Report Type: Spontaneous
  Country: GB (occurrence: GB)
  Receive Date: 20130830
  Receipt Date: 20130830
  Transmission Date: 20140515
  Serious: Yes (Other)
  Sender: FDA-Public Use
  Company Number: GB-ROCHE-1174304

PATIENT
  Sex: 0

DRUGS (2)
  1. CAPECITABINE [Suspect]
     Indication: GASTROINTESTINAL NEOPLASM
     Route: 065
  2. 5-FLUOROURACIL [Suspect]
     Indication: GASTROINTESTINAL NEOPLASM
     Route: 065

REACTIONS (8)
  - Myocardial infarction [Unknown]
  - Acute coronary syndrome [Unknown]
  - Cardiac failure [Unknown]
  - Cerebrovascular accident [Unknown]
  - Transient ischaemic attack [Unknown]
  - Arteriospasm coronary [Unknown]
  - Chest pain [Unknown]
  - Arrhythmia [Unknown]
